FAERS Safety Report 7460986-8 (Version None)
Quarter: 2011Q2

REPORT INFORMATION
  Report Type: 
  Country: None (occurrence: None)
  Receive Date: 20110505
  Receipt Date: 20101112
  Transmission Date: 20111010
  Serious: Yes (Other)
  Sender: FDA-Public Use
  Company Number: US-AMGEN-USASP2010005177

PATIENT
  Age: 61 Year
  Sex: Female

DRUGS (7)
  1. MAGNESIUM [Concomitant]
     Dosage: 400 MG, TID
     Dates: start: 20100101, end: 20101110
  2. MAGNESIUM [Concomitant]
     Dosage: 400 MG, QD
     Dates: end: 20101025
  3. MINOCYCLINE [Concomitant]
     Dosage: 100 MG, BID
     Dates: end: 20101110
  4. MINOCYCLINE [Concomitant]
     Dosage: 100 MG, QD
     Dates: end: 20101025
  5. VECTIBIX [Suspect]
     Indication: PRODUCT USED FOR UNKNOWN INDICATION
     Dosage: 726 MG, Q2WK
     Dates: start: 20101026
  6. MINOCYCLINE [Concomitant]
     Dosage: 3 MG, QD
     Dates: start: 20101101
  7. MAGNESIUM [Concomitant]
     Dosage: 3 MG, QD
     Dates: start: 20101110

REACTIONS (4)
  - SKIN EXFOLIATION [None]
  - SKIN FISSURES [None]
  - SKIN REACTION [None]
  - ERYTHEMA [None]
